FAERS Safety Report 23741471 (Version 1)
Quarter: 2024Q2

REPORT INFORMATION
  Report Type: Other
  Country: US (occurrence: None)
  Receive Date: 20240415
  Receipt Date: 20240415
  Transmission Date: 20240715
  Serious: Yes (Hospitalization)
  Sender: FDA-Public Use
  Company Number: US-ROCHE-3540658

PATIENT
  Age: 37 Year
  Sex: Female
  Weight: 77.18 kg

DRUGS (1)
  1. OCREVUS [Suspect]
     Active Substance: OCRELIZUMAB
     Indication: Multiple sclerosis
     Dosage: DATE OF TREATMENT 11-SEP-2023,
     Route: 065

REACTIONS (3)
  - Cyst [Unknown]
  - Infected cyst [Recovered/Resolved]
  - Wound [Not Recovered/Not Resolved]
